FAERS Safety Report 6434142-6 (Version None)
Quarter: 2009Q4

REPORT INFORMATION
  Report Type: 
  Country: None (occurrence: None)
  Receive Date: 20091110
  Receipt Date: 20090807
  Transmission Date: 20100525
  Serious: No
  Sender: FDA-Public Use
  Company Number: US-ASTRAZENECA-2009SE12409

PATIENT
  Sex: Female

DRUGS (1)
  1. PRILOSEC OTC [Suspect]
     Dosage: UNKNOWN
     Route: 048
     Dates: start: 20090803

REACTIONS (3)
  - EYE IRRITATION [None]
  - PARAESTHESIA [None]
  - PRURITUS GENERALISED [None]
